FAERS Safety Report 5602545-5 (Version None)
Quarter: 2008Q1

REPORT INFORMATION
  Report Type: 
  Country: None (occurrence: None)
  Receive Date: 20080125
  Receipt Date: 20080124
  Transmission Date: 20080703
  Serious: Yes (Hospitalization)
  Sender: FDA-Public Use
  Company Number: B0505089A

PATIENT
  Age: 56 Year
  Sex: Female
  Weight: 80.5 kg

DRUGS (1)
  1. TOPOTECAN [Suspect]
     Route: 042

REACTIONS (1)
  - SUBILEUS [None]
